FAERS Safety Report 5974556-1 (Version None)
Quarter: 2008Q4

REPORT INFORMATION
  Report Type: 
  Country: None (occurrence: None)
  Receive Date: 20081201
  Receipt Date: 20081121
  Transmission Date: 20090506
  Serious: Yes (Other)
  Sender: FDA-Public Use
  Company Number: US-PFIZER INC-2008099273

PATIENT
  Sex: Female

DRUGS (3)
  1. NEURONTIN [Suspect]
     Dates: start: 19990101
  2. GABAPENTIN [Suspect]
  3. KLONOPIN [Suspect]

REACTIONS (5)
  - AMPUTATION [None]
  - DRUG DISPENSING ERROR [None]
  - DRUG INEFFECTIVE [None]
  - PAIN IN EXTREMITY [None]
  - SEDATION [None]
